FAERS Safety Report 22031167 (Version 1)
Quarter: 2023Q1

REPORT INFORMATION
  Report Type: Report from Study
  Country: CO (occurrence: CO)
  Receive Date: 20230223
  Receipt Date: 20230223
  Transmission Date: 20230417
  Serious: Yes (Hospitalization)
  Sender: FDA-Public Use
  Company Number: CO-ABBVIE-4257944

PATIENT
  Age: 43 Year
  Sex: Female
  Weight: 75 kg

DRUGS (15)
  1. RINVOQ [Suspect]
     Active Substance: UPADACITINIB
     Indication: Rheumatoid arthritis
     Dosage: 15 MILLIGRAM
     Route: 048
     Dates: start: 20221210
  2. PROPAFENONE [Concomitant]
     Active Substance: PROPAFENONE
     Indication: Arrhythmia
     Route: 048
     Dates: start: 2022
  3. TIZANIDINE [Concomitant]
     Active Substance: TIZANIDINE
     Indication: Occipital neuralgia
     Dosage: 2 MILLIGRAM
     Route: 048
     Dates: start: 2021
  4. DULOXETINE [Concomitant]
     Active Substance: DULOXETINE
     Indication: Depression
     Dosage: 60 MILLIGRAM
     Route: 048
     Dates: start: 2021
  5. FOLIC ACID [Concomitant]
     Active Substance: FOLIC ACID
     Indication: Product used for unknown indication
     Dosage: 1 MILLIGRAM
     Route: 048
     Dates: start: 2020
  6. Humylub Ofteno? [Concomitant]
     Indication: Dry eye
     Route: 047
     Dates: start: 2021
  7. TRAZODONE [Concomitant]
     Active Substance: TRAZODONE HYDROCHLORIDE
     Indication: Depression
     Route: 048
     Dates: start: 2021
  8. PREGABALIN [Concomitant]
     Active Substance: PREGABALIN
     Indication: Pain
     Dosage: 75 MILLIGRAM
     Route: 048
     Dates: start: 2021
  9. Amdipin? [Concomitant]
     Indication: Blood pressure measurement
     Route: 048
     Dates: start: 2021
  10. CALCITRIOL [Concomitant]
     Active Substance: CALCITRIOL
     Indication: Rheumatoid arthritis
     Dosage: 0.5 MILLIGRAM
     Route: 048
     Dates: start: 2021
  11. Mylanta? [Concomitant]
     Indication: Gastritis
     Route: 048
     Dates: start: 2020
  12. LACTULOSE [Concomitant]
     Active Substance: LACTULOSE
     Indication: Gastritis
     Dosage: 1 SACHET
     Route: 048
     Dates: start: 2022
  13. BISOPROLOL [Concomitant]
     Active Substance: BISOPROLOL
     Indication: Arrhythmia
     Dosage: 5 MILLIGRAM
     Route: 048
     Dates: start: 2022
  14. ACETAMINOPHEN [Concomitant]
     Active Substance: ACETAMINOPHEN
     Indication: Pain
     Route: 048
     Dates: start: 2020
  15. IRBESARTAN [Concomitant]
     Active Substance: IRBESARTAN
     Indication: Hypertension
     Route: 048
     Dates: start: 2022

REACTIONS (24)
  - Seizure [Recovering/Resolving]
  - Anxiety [Not Recovered/Not Resolved]
  - Headache [Not Recovered/Not Resolved]
  - Hypertensive crisis [Recovering/Resolving]
  - Back pain [Not Recovered/Not Resolved]
  - Dyspnoea [Recovering/Resolving]
  - Nasopharyngitis [Not Recovered/Not Resolved]
  - Agitation [Recovering/Resolving]
  - Chest pain [Not Recovered/Not Resolved]
  - Feeling cold [Not Recovered/Not Resolved]
  - Pain in extremity [Not Recovered/Not Resolved]
  - Muscle spasms [Not Recovered/Not Resolved]
  - Arthralgia [Not Recovered/Not Resolved]
  - Chest pain [Not Recovered/Not Resolved]
  - Facial pain [Not Recovered/Not Resolved]
  - Tremor [Not Recovered/Not Resolved]
  - Headache [Recovering/Resolving]
  - Listless [Not Recovered/Not Resolved]
  - Paraesthesia [Not Recovered/Not Resolved]
  - Blood pressure abnormal [Not Recovered/Not Resolved]
  - Hyperaesthesia [Not Recovered/Not Resolved]
  - Vision blurred [Recovering/Resolving]
  - Dizziness [Recovering/Resolving]
  - Hypoaesthesia [Not Recovered/Not Resolved]

NARRATIVE: CASE EVENT DATE: 20221201
